FAERS Safety Report 7078544-6 (Version None)
Quarter: 2010Q4

REPORT INFORMATION
  Report Type: 
  Country: None (occurrence: None)
  Receive Date: 20101101
  Receipt Date: 20101101
  Transmission Date: 20110411
  Serious: Yes (Other)
  Sender: FDA-Public Use
  Company Number: None

PATIENT
  Age: 9 Month
  Sex: Female
  Weight: 7.2576 kg

DRUGS (2)
  1. HYLANDS TEETHING TABLETS HOMEOPATHIC HYLANDS [Suspect]
     Indication: TEETHING
     Dosage: 2 TABLETS 3 TO 4/DAY PO
     Route: 048
     Dates: start: 20101019, end: 20101022
  2. HYLANDS TEETHING TABLETS HOMEOPATHIC HYLANDS [Suspect]
     Indication: TEETHING
     Dosage: 2 TABLETS 3 TO 4/DAY PO
     Route: 048
     Dates: start: 20101027, end: 20101028

REACTIONS (4)
  - AGITATION [None]
  - NASOPHARYNGITIS [None]
  - PYREXIA [None]
  - SOMNOLENCE [None]
